FAERS Safety Report 5242674-1 (Version None)
Quarter: 2007Q1

REPORT INFORMATION
  Report Type: 
  Country: None (occurrence: None)
  Receive Date: 20070214
  Receipt Date: 20070125
  Transmission Date: 20070707
  Serious: Yes (Hospitalization)
  Sender: FDA-Public Use
  Company Number: E2020-00701-CLI-CA

PATIENT
  Age: 81 Year
  Sex: Male
  Weight: 68 kg

DRUGS (8)
  1. E020 (DONEPEZIL HYDROCHLORIDE) [Suspect]
     Indication: DEMENTIA ALZHEIMER'S TYPE
     Dosage: 10 MG, 1 IN 1 D, ORAL
     Route: 048
     Dates: start: 20050926, end: 20061101
  2. E020 (DONEPEZIL HYDROCHLORIDE) [Suspect]
     Indication: DEMENTIA ALZHEIMER'S TYPE
     Dosage: 10 MG, 1 IN 1 D, ORAL
     Route: 048
     Dates: start: 20061109
  3. ATORVASTATIN CALCIUM [Suspect]
     Indication: DEMENTIA ALZHEIMER'S TYPE
     Dosage: DOUBLEBLIND, ORAL
     Route: 048
     Dates: start: 20050926, end: 20061101
  4. ATORVASTATIN CALCIUM [Suspect]
     Indication: DEMENTIA ALZHEIMER'S TYPE
     Dosage: DOUBLEBLIND, ORAL
     Route: 048
     Dates: start: 20061116
  5. ATACAND [Concomitant]
  6. GEN-INDAPAMIDE(INDAPAMIDE) [Concomitant]
  7. NORVASC [Concomitant]
  8. ATORVASTATIN CALCIUM [Concomitant]

REACTIONS (4)
  - ANOREXIA [None]
  - INGUINAL HERNIA, OBSTRUCTIVE [None]
  - PANCREATITIS [None]
  - SMALL INTESTINAL OBSTRUCTION [None]
